FAERS Safety Report 9350600 (Version 3)
Quarter: 2013Q2

REPORT INFORMATION
  Report Type: Spontaneous
  Country: US (occurrence: US)
  Receive Date: 20130617
  Receipt Date: 20130624
  Transmission Date: 20140414
  Serious: Yes (Life-Threatening, Hospitalization)
  Sender: FDA-Public Use
  Company Number: US-JNJFOC-20130607845

PATIENT
  Age: 85 Year
  Sex: Male
  Weight: 106 kg

DRUGS (14)
  1. XARELTO [Suspect]
     Indication: DEEP VEIN THROMBOSIS
     Route: 048
     Dates: start: 20121219, end: 20130107
  2. ASPIRIN [Suspect]
     Indication: PRODUCT USED FOR UNKNOWN INDICATION
     Route: 065
  3. BETAPACE [Concomitant]
     Route: 065
  4. ACETAMINOPHEN [Concomitant]
     Indication: PAIN
     Route: 065
  5. DAYPRO [Concomitant]
     Route: 065
  6. NEURONTIN [Concomitant]
     Route: 065
  7. FOLIC ACID [Concomitant]
     Route: 065
  8. PARAFON FORTE [Concomitant]
     Route: 065
  9. NEXIUM [Concomitant]
     Route: 065
  10. VITAMINE E [Concomitant]
     Route: 065
  11. VYTORIN [Concomitant]
     Dosage: 10/20 MG
     Route: 065
  12. XANAX [Concomitant]
     Route: 065
  13. NIASPAN [Concomitant]
     Dosage: 500
     Route: 065
  14. INDAPAMIDE [Concomitant]
     Dosage: IN THE MORNING
     Route: 065

REACTIONS (3)
  - Fall [Unknown]
  - Cervical vertebral fracture [Unknown]
  - Post procedural haemorrhage [Recovering/Resolving]
